FAERS Safety Report 8600351-0 (Version None)
Quarter: 2012Q3

REPORT INFORMATION
  Report Type: 
  Country: None (occurrence: None)
  Receive Date: 20120817
  Receipt Date: 20120813
  Transmission Date: 20120928
  Serious: No
  Sender: FDA-Public Use
  Company Number: US-PFIZER INC-2012198183

PATIENT
  Sex: Female
  Weight: 51.701 kg

DRUGS (1)
  1. PREMPRO [Suspect]
     Indication: HOT FLUSH
     Dosage: 0.625 MG, UNK
     Dates: start: 20080101

REACTIONS (1)
  - BLOOD PRESSURE INCREASED [None]
